FAERS Safety Report 11016957 (Version 2)
Quarter: 2015Q2

REPORT INFORMATION
  Report Type: Spontaneous
  Country: US (occurrence: US)
  Receive Date: 20150412
  Receipt Date: 20150525
  Transmission Date: 20150821
  Serious: No
  Sender: FDA-Public Use
  Company Number: US-JNJFOC-20130106694

PATIENT
  Age: 32 Year
  Sex: Female
  Weight: 49.9 kg

DRUGS (1)
  1. ORTHO EVRA [Suspect]
     Active Substance: ETHINYL ESTRADIOL\NORELGESTROMIN
     Indication: CONTRACEPTION
     Route: 062
     Dates: start: 201206, end: 201210

REACTIONS (9)
  - Breast swelling [Recovering/Resolving]
  - Insomnia [Recovering/Resolving]
  - Fatigue [Recovering/Resolving]
  - Parosmia [Recovering/Resolving]
  - Nausea [Recovering/Resolving]
  - Malaise [Recovering/Resolving]
  - Flatulence [Recovering/Resolving]
  - Psychomotor hyperactivity [Recovering/Resolving]
  - Motion sickness [Recovering/Resolving]

NARRATIVE: CASE EVENT DATE: 201207
